FAERS Safety Report 4869067-0 (Version None)
Quarter: 2005Q4

REPORT INFORMATION
  Report Type: 
  Country: None (occurrence: None)
  Receive Date: 20051220
  Receipt Date: 20051206
  Transmission Date: 20060501
  Serious: Yes (Disabling)
  Sender: FDA-Public Use
  Company Number: 200509573

PATIENT
  Age: 64 Year
  Sex: Female
  Weight: 58.9676 kg

DRUGS (16)
  1. GAMMAR-P I.V. [Suspect]
     Indication: CHRONIC INFLAMMATORY DEMYELINATING POLYRADICULONEUROPATHY
     Dosage: IV
     Route: 042
     Dates: start: 20040126, end: 20040323
  2. GAMMAR-P I.V. [Suspect]
     Dates: start: 20040420, end: 20040420
  3. GAMMAR-P I.V. [Suspect]
     Dates: start: 20040420, end: 20040618
  4. GAMMAR-P I.V. [Suspect]
     Dates: start: 20040525, end: 20040525
  5. GAMMAR-P I.V. [Suspect]
     Dates: start: 20040715, end: 20040715
  6. GAMMAR-P I.V. [Suspect]
     Dates: start: 20040818, end: 20041020
  7. GAMMAR-P I.V. [Suspect]
     Dates: start: 20041020, end: 20041020
  8. GAMMAR-P I.V. [Suspect]
     Dates: start: 20041117, end: 20041117
  9. CARIMUNE [Suspect]
     Indication: CHRONIC INFLAMMATORY DEMYELINATING POLYRADICULONEUROPATHY
     Dosage: IV
     Route: 042
     Dates: start: 20041216, end: 20051010
  10. FUROSEMIDE [Concomitant]
  11. NEURONTIN [Concomitant]
  12. TORADOL [Concomitant]
  13. ASPIRIN [Concomitant]
  14. ACETAMINOPHEN [Concomitant]
  15. SODIUM CHLORIDE 0.9% [Concomitant]
  16. HEPARIN LOCK-FLUSH [Concomitant]

REACTIONS (2)
  - HEPATITIS C [None]
  - RASH [None]
